FAERS Safety Report 20968211 (Version 7)
Quarter: 2022Q3

REPORT INFORMATION
  Report Type: Spontaneous
  Country: IN (occurrence: IN)
  Receive Date: 20220616
  Receipt Date: 20220915
  Transmission Date: 20221027
  Serious: Yes (Other)
  Sender: FDA-Public Use
  Company Number: IN-PFIZER INC-202101676965

PATIENT
  Age: 50 Year
  Sex: Male

DRUGS (4)
  1. DACOMITINIB [Suspect]
     Active Substance: DACOMITINIB
     Indication: Lung adenocarcinoma
     Dosage: 45 MG, ONCE A DAY
     Route: 048
     Dates: start: 20210819
  2. DACOMITINIB [Suspect]
     Active Substance: DACOMITINIB
     Dosage: 30 MG, ONCE A DAY
     Route: 048
     Dates: start: 20211116, end: 20220902
  3. ZOLEDRONIC ACID [Concomitant]
     Active Substance: ZOLEDRONIC ACID
     Dosage: 4 MG
     Dates: start: 20220114
  4. ZOLEDRONIC ACID [Concomitant]
     Active Substance: ZOLEDRONIC ACID
     Dosage: 4 MG, 1X/DAY
     Dates: start: 20220613

REACTIONS (15)
  - Deafness [Unknown]
  - Electrocardiogram QT prolonged [Unknown]
  - Blood pressure increased [Unknown]
  - Eating disorder [Unknown]
  - Nausea [Unknown]
  - Haemoglobin decreased [Unknown]
  - Blood potassium decreased [Unknown]
  - Heart rate increased [Unknown]
  - Blood urea increased [Unknown]
  - Cough [Unknown]
  - Rash [Recovered/Resolved]
  - Gamma-glutamyltransferase increased [Unknown]
  - Cholelithiasis [Unknown]
  - Body mass index increased [Unknown]
  - Neoplasm progression [Unknown]

NARRATIVE: CASE EVENT DATE: 20211106
